FAERS Safety Report 8729634 (Version 18)
Quarter: 2024Q1

REPORT INFORMATION
  Report Type: Other
  Country: CA (occurrence: CA)
  Receive Date: 20120817
  Receipt Date: 20240102
  Transmission Date: 20240410
  Serious: Yes (Hospitalization, Other)
  Sender: FDA-Public Use
  Company Number: CA-ROCHE-1101392

PATIENT
  Age: 60 Year
  Sex: Female
  Weight: 82.3 kg

DRUGS (17)
  1. XOLAIR [Suspect]
     Active Substance: OMALIZUMAB
     Indication: Asthma
     Dosage: 300 MG, BIW (EVERY TWO WEEKS)
     Route: 058
     Dates: start: 20100201
  2. XOLAIR [Suspect]
     Active Substance: OMALIZUMAB
     Indication: Asthma
     Dosage: UNK
     Route: 058
     Dates: start: 20121030
  3. XOLAIR [Suspect]
     Active Substance: OMALIZUMAB
     Dosage: UNK
     Route: 058
     Dates: start: 20121227
  4. XOLAIR [Suspect]
     Active Substance: OMALIZUMAB
     Dosage: UNK
     Route: 058
     Dates: start: 20140325
  5. XOLAIR [Suspect]
     Active Substance: OMALIZUMAB
     Dosage: UNK
     Route: 058
     Dates: start: 20140424
  6. XOLAIR [Suspect]
     Active Substance: OMALIZUMAB
     Dosage: 300 MG, BIW
     Route: 058
     Dates: start: 20180323
  7. XOLAIR [Suspect]
     Active Substance: OMALIZUMAB
     Dosage: 300MG,BIW
     Route: 058
     Dates: start: 2018
  8. XOLAIR [Suspect]
     Active Substance: OMALIZUMAB
     Dosage: 300 MG, BIW
     Route: 065
     Dates: start: 20110622
  9. XOLAIR [Suspect]
     Active Substance: OMALIZUMAB
     Dosage: 300 MG, BIW
     Route: 058
  10. XOLAIR [Suspect]
     Active Substance: OMALIZUMAB
     Dosage: 300 MG, BIW
     Route: 058
     Dates: start: 20211116
  11. XOLAIR [Suspect]
     Active Substance: OMALIZUMAB
     Dosage: 300MG,BIW
     Route: 058
  12. XOLAIR [Suspect]
     Active Substance: OMALIZUMAB
     Dosage: 300 MG, BIW
     Route: 058
     Dates: start: 20110622
  13. XOLAIR [Suspect]
     Active Substance: OMALIZUMAB
     Route: 058
     Dates: start: 20231108
  14. ADVAIR HFA [Concomitant]
     Active Substance: FLUTICASONE PROPIONATE\SALMETEROL XINAFOATE
     Indication: Product used for unknown indication
     Route: 065
  15. ALBUTEROL [Concomitant]
     Active Substance: ALBUTEROL
     Indication: Product used for unknown indication
     Route: 065
  16. THEOPHYLLINE [Concomitant]
     Active Substance: THEOPHYLLINE
     Indication: Product used for unknown indication
     Route: 048
  17. SINGULAIR [Concomitant]
     Active Substance: MONTELUKAST SODIUM
     Indication: Product used for unknown indication
     Route: 065

REACTIONS (23)
  - Sepsis [Unknown]
  - Dyspnoea [Unknown]
  - Coronavirus infection [Unknown]
  - Lung disorder [Unknown]
  - Dysarthria [Unknown]
  - Blood glucose decreased [Unknown]
  - Headache [Unknown]
  - Asthma [Recovered/Resolved]
  - Intervertebral disc degeneration [Unknown]
  - Intervertebral disc protrusion [Unknown]
  - Back pain [Unknown]
  - Shoulder fracture [Unknown]
  - Pain [Unknown]
  - Lower respiratory tract infection [Unknown]
  - Sputum discoloured [Recovering/Resolving]
  - Blood pressure increased [Unknown]
  - Heart rate increased [Unknown]
  - Dyspnoea exertional [Unknown]
  - Pyrexia [Unknown]
  - Oedema peripheral [Unknown]
  - Face oedema [Unknown]
  - Nasopharyngitis [Unknown]
  - Weight increased [Unknown]

NARRATIVE: CASE EVENT DATE: 20120201
